FAERS Safety Report 9167987 (Version 1)
Quarter: 2013Q1

REPORT INFORMATION
  Report Type: Spontaneous
  Country: GB (occurrence: None)
  Receive Date: 20130307
  Receipt Date: 20130307
  Transmission Date: 20140127
  Serious: Yes (Hospitalization)
  Sender: FDA-Public Use
  Company Number: 2013-03023

PATIENT
  Age: 62 Year
  Sex: Male

DRUGS (7)
  1. LOSARTAN POTASSIUM (UNKNOWN) (LOSARTAN POTASSIUM) UNK, UNK UNK [Suspect]
     Indication: HYPERTENSION
     Dates: start: 201206, end: 20130120
  2. SIMVASTATIN (SIMVASTATIN) [Concomitant]
  3. THYROXINE (LEVOTHYROXINE SODIUM) [Concomitant]
  4. LAMOTRIGINE (LAMOTRIGINE) [Concomitant]
  5. DULOXETINE [Concomitant]
  6. QUETIAPINE (QUETIAPINE) (QUETIAPINE) [Concomitant]
  7. LITHIUM (LITHIUM) UNKNOWN [Concomitant]

REACTIONS (3)
  - Back pain [None]
  - Renal impairment [None]
  - Drug prescribing error [None]
